FAERS Safety Report 23308948 (Version 1)
Quarter: 2023Q4

REPORT INFORMATION
  Report Type: Spontaneous
  Country: US (occurrence: None)
  Receive Date: 20231215
  Receipt Date: 20231215
  Transmission Date: 20240110
  Serious: Yes (Hospitalization)
  Sender: FDA-Public Use
  Company Number: None

PATIENT
  Sex: Female

DRUGS (11)
  1. TACROLIMUS [Suspect]
     Active Substance: TACROLIMUS
  2. ASPIRIN CHW 81MG [Concomitant]
  3. ATORVASTATIN TAB 10MG [Concomitant]
  4. BACTRIM TAB 400-80MG [Concomitant]
  5. CALCITRATE TAB [Concomitant]
  6. MAG-OX 400 TAB 400MG [Concomitant]
  7. METANX TAB [Concomitant]
  8. NEURONTIN CAP 100MG [Concomitant]
  9. TRAZODONE TAB 50MG [Concomitant]
  10. VITAMIN CD TAB 500MG [Concomitant]
  11. ZYRTEC ALLGY TAB 10MG [Concomitant]

REACTIONS (2)
  - Pancreas transplant rejection [None]
  - Dry mouth [None]
